FAERS Safety Report 8267253-3 (Version None)
Quarter: 2012Q2

REPORT INFORMATION
  Report Type: 
  Country: None (occurrence: None)
  Receive Date: 20120409
  Receipt Date: 20120331
  Transmission Date: 20120825
  Serious: Yes (Hospitalization, Other)
  Sender: FDA-Public Use
  Company Number: US-BAYER-2011-047123

PATIENT
  Age: 21 Year
  Sex: Female
  Weight: 81.633 kg

DRUGS (8)
  1. DROSPIRENONE AND ETHINYL ESTRADIOL [Suspect]
     Indication: CONTRACEPTION
     Dates: start: 20090201, end: 20090501
  2. YAZ [Suspect]
  3. FLUOXETINE [Concomitant]
     Indication: DEPRESSION
     Dosage: UNK UNK, QD
     Route: 048
     Dates: start: 20060501, end: 20090701
  4. PROZAC [Concomitant]
     Indication: DEPRESSION
  5. DROSPIRENONE AND ETHINYL ESTRADIOL [Suspect]
     Indication: PREMENSTRUAL SYNDROME
  6. YASMIN [Suspect]
     Indication: CONTRACEPTION
     Dates: start: 20080301, end: 20090201
  7. PROZAC [Concomitant]
     Indication: ANXIETY
  8. YASMIN [Suspect]
     Indication: PREMENSTRUAL SYNDROME

REACTIONS (8)
  - CONVULSION [None]
  - PSYCHOLOGICAL TRAUMA [None]
  - ANHEDONIA [None]
  - PAIN [None]
  - INJURY [None]
  - FEAR [None]
  - EMOTIONAL DISTRESS [None]
  - ANXIETY [None]
